FAERS Safety Report 4483387-3 (Version None)
Quarter: 2004Q4

REPORT INFORMATION
  Report Type: 
  Country: None (occurrence: None)
  Receive Date: 20041020
  Receipt Date: 20041014
  Transmission Date: 20050328
  Serious: Yes (Death, Life-Threatening)
  Sender: FDA-Public Use
  Company Number: 2004-121265-NL

PATIENT
  Sex: Male

DRUGS (2)
  1. MIRTAZAPINE [Suspect]
     Dosage: 10 MG QD ORAL
     Route: 048
     Dates: start: 20040506, end: 20040529
  2. LORAZEPAM [Suspect]
     Dosage: 10 MG QD ORAL
     Route: 048
     Dates: start: 20040527, end: 20040529

REACTIONS (3)
  - COMPLETED SUICIDE [None]
  - INJURY ASPHYXIATION [None]
  - RESTLESSNESS [None]
